FAERS Safety Report 20000843 (Version 1)
Quarter: 2021Q4

REPORT INFORMATION
  Report Type: Report from Study
  Country: MX (occurrence: MX)
  Receive Date: 20211027
  Receipt Date: 20211027
  Transmission Date: 20220304
  Serious: Yes (Hospitalization)
  Sender: FDA-Public Use
  Company Number: MX-NOVARTISPH-NVSC2021MX112336

PATIENT
  Age: 78 Year
  Sex: Female
  Weight: 61 kg

DRUGS (4)
  1. HYDROCHLOROTHIAZIDE\VALSARTAN [Suspect]
     Active Substance: HYDROCHLOROTHIAZIDE\VALSARTAN
     Indication: Hypertension
     Dosage: 1 DF(TABLET), QD
     Route: 048
     Dates: start: 2018, end: 20210305
  2. DIOVAN [Suspect]
     Active Substance: VALSARTAN
     Indication: Hypertension
     Dosage: 2 DF, QD
     Route: 048
     Dates: start: 20210305
  3. DAPAGLIFLOZIN [Concomitant]
     Active Substance: DAPAGLIFLOZIN
     Indication: Product used for unknown indication
     Dosage: 1 DF (WITH MEAL)
     Route: 048
     Dates: start: 202103
  4. LINAGLIPTIN [Concomitant]
     Active Substance: LINAGLIPTIN
     Indication: Diabetes mellitus
     Dosage: 1 DF (AT NIGHT), 5 YEARS AGO
     Route: 048

REACTIONS (4)
  - Malignant melanoma [Recovered/Resolved]
  - Blood sodium decreased [Recovering/Resolving]
  - Cough [Recovering/Resolving]
  - Incontinence [Recovering/Resolving]

NARRATIVE: CASE EVENT DATE: 20210326
